FAERS Safety Report 8773595 (Version 1)
Quarter: 2012Q4

REPORT INFORMATION
  Report Type: 
  Country: BR (occurrence: BR)
  Receive Date: 20120907
  Receipt Date: 20120907
  Transmission Date: 20130627
  Serious: Yes (Hospitalization, Other)
  Sender: FDA-Public Use
  Company Number: PHHY2012BR076460

PATIENT
  Age: 76 Year
  Sex: Male

DRUGS (3)
  1. STALEVO [Suspect]
     Indication: PARKINSON^S DISEASE
     Dosage: 1 DF, daily
  2. STALEVO [Suspect]
     Dosage: 0.5 DF, UNK
  3. PROLOPA [Concomitant]
     Dosage: 0.5 DF, UNK

REACTIONS (17)
  - Aggression [Unknown]
  - Hallucination [Unknown]
  - Masked facies [Unknown]
  - Eye movement disorder [Unknown]
  - Speech disorder [Unknown]
  - Snoring [Unknown]
  - Laryngeal obstruction [Unknown]
  - Tracheal obstruction [Unknown]
  - Productive cough [Unknown]
  - Increased bronchial secretion [Unknown]
  - Disorientation [Unknown]
  - Somnolence [Unknown]
  - Hypokinesia [Unknown]
  - Dysphagia [Unknown]
  - Immobile [None]
  - Somnolence [None]
  - Pharyngeal disorder [None]
